FAERS Safety Report 11802720 (Version 2)
Quarter: 2016Q2

REPORT INFORMATION
  Report Type: Spontaneous
  Country: US (occurrence: US)
  Receive Date: 20151204
  Receipt Date: 20160527
  Transmission Date: 20160815
  Serious: No
  Sender: FDA-Public Use
  Company Number: US-RAPTOR-RAP-001100-2015

PATIENT
  Age: 8 Year
  Sex: Female
  Weight: 27.5 kg

DRUGS (16)
  1. PROCYSBI DELAYED-RELEASE [Suspect]
     Active Substance: CYSTEAMINE BITARTRATE
     Dosage: 800 MG, BID
     Route: 048
  2. FERROUS SULFATE. [Concomitant]
     Active Substance: FERROUS SULFATE
     Indication: CYSTINOSIS
     Dosage: 0.5 ML, QD
  3. ZOFRAN [Concomitant]
     Active Substance: ONDANSETRON HYDROCHLORIDE
     Indication: CYSTINOSIS
     Dosage: 4 MG, QD
  4. POLYVISOL [Concomitant]
     Indication: CYSTINOSIS
     Dosage: 1 MG, QD
     Dates: start: 200811
  5. PROCYSBI DELAYED-RELEASE [Suspect]
     Active Substance: CYSTEAMINE BITARTRATE
     Indication: CYSTINOSIS
     Dosage: 875 MG, BID THROUGH 75MG AND 25 MG
     Dates: start: 201312
  6. PROCYSBI DELAYED-RELEASE [Suspect]
     Active Substance: CYSTEAMINE BITARTRATE
     Dosage: UNK
  7. ZYRTEC [Concomitant]
     Active Substance: CETIRIZINE HYDROCHLORIDE
     Indication: CYSTINOSIS
     Dosage: 5 ML, QD
  8. CARNITOR [Concomitant]
     Active Substance: LEVOCARNITINE
     Indication: CYSTINOSIS
     Dosage: 1.5 ML, TID
  9. CYSTEAMINE EYE [Concomitant]
     Indication: CYSTINOSIS
     Dosage: UNK, QD
     Route: 047
  10. MANGANATE [Concomitant]
     Indication: CYSTINOSIS
     Dosage: 4.5 ML, BID
  11. POLYCITRA K [Concomitant]
     Indication: CYSTINOSIS
     Dosage: 6 ML, TID
     Dates: start: 200811
  12. POTASSIUM CHLORIDE. [Concomitant]
     Active Substance: POTASSIUM CHLORIDE
     Indication: CYSTINOSIS
     Dosage: 14 ML, TID
     Dates: start: 200811
  13. SODIUM CHLORIDE. [Concomitant]
     Active Substance: SODIUM CHLORIDE
     Indication: CYSTINOSIS
     Dosage: 1 ML, TID
     Dates: start: 200811
  14. PHOSNAK [Concomitant]
     Indication: CYSTINOSIS
     Dosage: 6 DF, QD
     Dates: start: 200811
  15. CALCITRIOL. [Concomitant]
     Active Substance: CALCITRIOL
     Indication: CHRONIC KIDNEY DISEASE
     Dosage: 0.4 ML, QD
     Dates: start: 200811
  16. PREVACID [Concomitant]
     Active Substance: LANSOPRAZOLE
     Indication: CYSTINOSIS
     Dosage: 30 MG, QD

REACTIONS (4)
  - Device occlusion [Recovered/Resolved]
  - Vomiting [Recovered/Resolved]
  - Retching [Recovered/Resolved]
  - Amino acid level increased [Recovered/Resolved]

NARRATIVE: CASE EVENT DATE: 20150826
